FAERS Safety Report 7658642-6 (Version None)
Quarter: 2011Q3

REPORT INFORMATION
  Report Type: 
  Country: None (occurrence: None)
  Receive Date: 20110805
  Receipt Date: 20110803
  Transmission Date: 20111222
  Serious: Yes (Hospitalization)
  Sender: FDA-Public Use
  Company Number: AR-BRISTOL-MYERS SQUIBB COMPANY-15945470

PATIENT
  Age: 29 Year
  Sex: Female

DRUGS (1)
  1. IXEMPRA KIT [Suspect]
     Dates: start: 20110715

REACTIONS (4)
  - SKIN DISCOLOURATION [None]
  - GAIT DISTURBANCE [None]
  - PAIN [None]
  - BURNING SENSATION [None]
